FAERS Safety Report 18887443 (Version 4)
Quarter: 2021Q3

REPORT INFORMATION
  Report Type: Report from Study
  Country: US (occurrence: US)
  Receive Date: 20210212
  Receipt Date: 20210723
  Transmission Date: 20211014
  Serious: Yes (Hospitalization, Other)
  Sender: FDA-Public Use
  Company Number: US-JNJFOC-20210107214

PATIENT
  Age: 44 Year
  Sex: Male
  Weight: 86.71 kg

DRUGS (7)
  1. UPTRAVI [Suspect]
     Active Substance: SELEXIPAG
     Indication: PULMONARY ARTERIAL HYPERTENSION
     Route: 048
  2. UPTRAVI [Suspect]
     Active Substance: SELEXIPAG
     Route: 048
  3. MACITENTAN [Suspect]
     Active Substance: MACITENTAN
     Indication: PULMONARY ARTERIAL HYPERTENSION
     Route: 048
  4. MACITENTAN [Suspect]
     Active Substance: MACITENTAN
     Route: 048
  5. UPTRAVI [Suspect]
     Active Substance: SELEXIPAG
     Route: 048
  6. UPTRAVI [Suspect]
     Active Substance: SELEXIPAG
     Route: 048
  7. ADEMPAS [Suspect]
     Active Substance: RIOCIGUAT
     Route: 065

REACTIONS (9)
  - Fluid retention [Not Recovered/Not Resolved]
  - Epistaxis [Unknown]
  - Haemorrhage [Unknown]
  - Blood pressure decreased [Unknown]
  - Vomiting [Unknown]
  - Gastric haemorrhage [Unknown]
  - Poor quality sleep [Unknown]
  - Intentional underdose [Unknown]
  - Migraine [Unknown]

NARRATIVE: CASE EVENT DATE: 20210304
